FAERS Safety Report 8600827-6 (Version None)
Quarter: 2012Q3

REPORT INFORMATION
  Report Type: 
  Country: None (occurrence: None)
  Receive Date: 20120803
  Receipt Date: 20120726
  Transmission Date: 20120928
  Serious: Yes (Death)
  Sender: FDA-Public Use
  Company Number: 2012DE0243

PATIENT
  Age: 57 Year
  Sex: Male

DRUGS (7)
  1. CISPLATIN [Concomitant]
  2. GOLIMUMAB (GOLIMUMAB) [Concomitant]
  3. TOCILIZOMAB (TOCILIZUMAB) [Concomitant]
  4. METHOTREXATE SODIUM [Concomitant]
  5. ADALIMUMAB (ADALIMUMAB) [Concomitant]
  6. KINERET [Suspect]
     Indication: POLYARTHRITIS
     Dates: start: 20080801, end: 20081001
  7. ABATACEPT(ABATACEPT) [Concomitant]

REACTIONS (1)
  - METASTATIC BRONCHIAL CARCINOMA [None]
